FAERS Safety Report 25957311 (Version 1)
Quarter: 2025Q4

REPORT INFORMATION
  Report Type: Spontaneous
  Country: US (occurrence: US)
  Receive Date: 20251024
  Receipt Date: 20251024
  Transmission Date: 20260118
  Serious: No
  Sender: SEPTODONT
  Company Number: US-SEPTODONT-2025019969

PATIENT
  Age: 60 Year
  Sex: Female

DRUGS (1)
  1. SEPTOCAINE [Suspect]
     Active Substance: ARTICAINE HYDROCHLORIDE\EPINEPHRINE BITARTRATE
     Indication: Dental local anaesthesia
     Route: 065
     Dates: start: 2025, end: 2025

REACTIONS (3)
  - Headache [Not Recovered/Not Resolved]
  - Injection site pain [Recovered/Resolved]
  - Injection site inflammation [Recovered/Resolved]

NARRATIVE: CASE EVENT DATE: 20250101
